FAERS Safety Report 7555050-3 (Version None)
Quarter: 2011Q2

REPORT INFORMATION
  Report Type: 
  Country: None (occurrence: None)
  Receive Date: 20110617
  Receipt Date: 20110608
  Transmission Date: 20111010
  Serious: Yes (Hospitalization)
  Sender: FDA-Public Use
  Company Number: IT-ASTRAZENECA-2011SE35264

PATIENT
  Age: 28067 Day
  Sex: Male

DRUGS (2)
  1. TENORETIC 100 [Suspect]
     Indication: HYPERTENSION
     Dosage: 100 MG+ 25 MG DAILY
     Route: 048
     Dates: start: 20080101, end: 20110306
  2. ACETYL SALICYLIC ACID COMPOUND TAB [Concomitant]

REACTIONS (2)
  - HYPOKALAEMIA [None]
  - DEHYDRATION [None]
